FAERS Safety Report 21540009 (Version 2)
Quarter: 2022Q4

REPORT INFORMATION
  Report Type: Report from Study
  Country: GB (occurrence: None)
  Receive Date: 20221102
  Receipt Date: 20221104
  Transmission Date: 20230112
  Serious: Yes (Hospitalization)
  Sender: FDA-Public Use
  Company Number: GB-ROCHE-3206241

PATIENT
  Age: 62 Year
  Sex: Male
  Weight: 65.5 kg

DRUGS (4)
  1. ATEZOLIZUMAB [Suspect]
     Active Substance: ATEZOLIZUMAB
     Indication: Small cell lung cancer extensive stage
     Dosage: START DATE OF MOST RECENT DOSE OF STUDY DRUG?PRIOR TO AE :29-SEP-2022
     Route: 041
     Dates: start: 20220728
  2. CARBOPLATIN [Suspect]
     Active Substance: CARBOPLATIN
     Indication: Small cell lung cancer extensive stage
     Dosage: START DATE OF MOST RECENT DOSE OF STUDY DRUG (630 MG) PRIOR TO AE 29-SEP-2022
     Route: 042
     Dates: start: 20220728
  3. ETOPOSIDE [Suspect]
     Active Substance: ETOPOSIDE
     Indication: Small cell lung cancer extensive stage
     Dosage: START DATE AND END DATE  OF MOST RECENT DOSE OF STUDY DRUG(400 MG) PRIOR TO AE :01-OCT-2022
     Route: 065
     Dates: start: 20220728
  4. CYCLIZINE [Concomitant]
     Active Substance: CYCLIZINE
     Indication: Vomiting
     Dates: start: 20220909

REACTIONS (1)
  - Chest pain [Recovered/Resolved]

NARRATIVE: CASE EVENT DATE: 20221020
